FAERS Safety Report 6573793-5 (Version None)
Quarter: 2010Q1

REPORT INFORMATION
  Report Type: 
  Country: None (occurrence: None)
  Receive Date: 20100204
  Receipt Date: 20100204
  Transmission Date: 20100710
  Serious: Yes (Other)
  Sender: FDA-Public Use
  Company Number: None

PATIENT
  Age: 76 Year
  Sex: Female
  Weight: 53.0709 kg

DRUGS (1)
  1. LEVAQUIN [Suspect]
     Indication: PNEUMONIA
     Dosage: 1 TABLET DAILY
     Dates: start: 20100127, end: 20100129

REACTIONS (3)
  - ARTHRALGIA [None]
  - MOVEMENT DISORDER [None]
  - MYALGIA [None]
